FAERS Safety Report 8525469-2 (Version None)
Quarter: 2012Q3

REPORT INFORMATION
  Report Type: 
  Country: None (occurrence: None)
  Receive Date: 20120710
  Receipt Date: 20120628
  Transmission Date: 20120928
  Serious: Yes (Other)
  Sender: FDA-Public Use
  Company Number: DSA_58284_2012

PATIENT

DRUGS (6)
  1. BLOOD CELLS, PACKED HUMAN [Concomitant]
  2. WHOLE BLOOD [Concomitant]
  3. METRONIDAZOLE [Suspect]
     Indication: CHOLECYSTITIS CHRONIC
     Dosage: DF TRANSPLACENTAL
     Route: 064
  4. ANTIBIOTICS [Concomitant]
  5. UNASYN [Concomitant]
  6. CEFOPERAZONE SODIUM [Concomitant]

REACTIONS (3)
  - FOETAL DISTRESS SYNDROME [None]
  - CAESAREAN SECTION [None]
  - MATERNAL DRUGS AFFECTING FOETUS [None]
